FAERS Safety Report 6470514-1 (Version None)
Quarter: 2009Q4

REPORT INFORMATION
  Report Type: 
  Country: None (occurrence: None)
  Receive Date: 20091119
  Receipt Date: 20080409
  Transmission Date: 20100525
  Serious: Yes (Other)
  Sender: FDA-Public Use
  Company Number: 2008-175332-NL

PATIENT
  Age: 25 Year
  Sex: Female
  Weight: 136 kg

DRUGS (1)
  1. IMPLANON [Suspect]
     Indication: CONTRACEPTION
     Dosage: SUBDERMAL
     Route: 059

REACTIONS (1)
  - DEEP VEIN THROMBOSIS [None]
